FAERS Safety Report 17696605 (Version 1)
Quarter: 2020Q2

REPORT INFORMATION
  Report Type: Spontaneous
  Country: US (occurrence: US)
  Receive Date: 20200423
  Receipt Date: 20200423
  Transmission Date: 20200714
  Serious: No
  Sender: FDA-Public Use
  Company Number: US-PURDUE-USA-2019-0148936

PATIENT
  Sex: Male
  Weight: 124.72 kg

DRUGS (1)
  1. OXYCODONE HCL TABLETS (91-490) [Suspect]
     Active Substance: OXYCODONE HYDROCHLORIDE
     Indication: PAIN
     Dosage: 30 MG 3-4 A DAY
     Route: 048
     Dates: start: 20190928

REACTIONS (4)
  - Therapeutic product effect delayed [Unknown]
  - Fluid retention [Unknown]
  - Nausea [Unknown]
  - Feeling abnormal [Unknown]
